FAERS Safety Report 17946024 (Version 1)
Quarter: 2020Q2

REPORT INFORMATION
  Report Type: Report from Study
  Country: CA (occurrence: CA)
  Receive Date: 20200626
  Receipt Date: 20200626
  Transmission Date: 20200714
  Serious: Yes (Other)
  Sender: FDA-Public Use
  Company Number: CA-ROCHE-2079439

PATIENT
  Age: 38 Year
  Sex: Female

DRUGS (11)
  1. LYRICA [Concomitant]
     Active Substance: PREGABALIN
  2. DIPHENHYDRAMINE. [Concomitant]
     Active Substance: DIPHENHYDRAMINE
     Dosage: 50 MG PO/IV X 1 30-60 MINUTES PRIOR TO INFUSION
     Route: 065
     Dates: start: 20180220
  3. RANITIDINE. [Concomitant]
     Active Substance: RANITIDINE
     Dosage: 50 MG IV 30-60 MINUTES PRIOR TO INFUSION
     Route: 042
     Dates: start: 20180220
  4. OCREVUS [Suspect]
     Active Substance: OCRELIZUMAB
     Indication: RELAPSING-REMITTING MULTIPLE SCLEROSIS
     Dosage: 300 MG ON DAY 0 AND DAY 14, 600 MG EVERY 6 MONTHS
     Route: 042
     Dates: start: 20180220
  5. ATIVAN [Concomitant]
     Active Substance: LORAZEPAM
  6. MIRTAZAPINE. [Concomitant]
     Active Substance: MIRTAZAPINE
  7. ACETAMINOPHEN. [Concomitant]
     Active Substance: ACETAMINOPHEN
     Dosage: 975 MG PO PRIOR TO INFUSION
     Route: 048
     Dates: start: 20180220
  8. GABAPENTIN. [Concomitant]
     Active Substance: GABAPENTIN
  9. ADVAIR HFA [Concomitant]
     Active Substance: FLUTICASONE PROPIONATE\SALMETEROL XINAFOATE
     Indication: SEASONAL ALLERGY
  10. NASONEX [Concomitant]
     Active Substance: MOMETASONE FUROATE
     Indication: SEASONAL ALLERGY
  11. BENADRYL [Concomitant]
     Active Substance: DIPHENHYDRAMINE HYDROCHLORIDE

REACTIONS (25)
  - Abdominal discomfort [Not Recovered/Not Resolved]
  - Disturbance in attention [Unknown]
  - Neuralgia [Not Recovered/Not Resolved]
  - Pain [Not Recovered/Not Resolved]
  - Muscle twitching [Recovered/Resolved]
  - Nausea [Unknown]
  - Anxiety [Not Recovered/Not Resolved]
  - Feeling of body temperature change [Recovered/Resolved]
  - Fatigue [Not Recovered/Not Resolved]
  - Stress [Not Recovered/Not Resolved]
  - White blood cell count decreased [Unknown]
  - Chills [Recovering/Resolving]
  - Feeling hot [Unknown]
  - Tremor [Unknown]
  - Muscular weakness [Not Recovered/Not Resolved]
  - Anxiety [Unknown]
  - Influenza [Unknown]
  - Infusion related reaction [Recovered/Resolved]
  - Post-traumatic stress disorder [Unknown]
  - Paraesthesia [Not Recovered/Not Resolved]
  - Aphasia [Recovered/Resolved]
  - Infusion related reaction [Recovering/Resolving]
  - Headache [Not Recovered/Not Resolved]
  - Lymphocyte count decreased [Unknown]
  - Feeling abnormal [Not Recovered/Not Resolved]

NARRATIVE: CASE EVENT DATE: 20180220
